FAERS Safety Report 14346991 (Version 1)
Quarter: 2018Q1

REPORT INFORMATION
  Report Type: Spontaneous
  Country: IL (occurrence: IL)
  Receive Date: 20180103
  Receipt Date: 20180103
  Transmission Date: 20180509
  Serious: Yes (Other)
  Sender: FDA-Public Use
  Company Number: IL-B.I. PHARMACEUTICALS,INC./RIDGEFIELD-2017-BI-068996

PATIENT
  Age: 71 Year
  Sex: Female

DRUGS (1)
  1. GILOTRIF [Suspect]
     Active Substance: AFATINIB
     Indication: LUNG ADENOCARCINOMA
     Route: 048
     Dates: start: 20170924, end: 20171213

REACTIONS (7)
  - Mucosal inflammation [Not Recovered/Not Resolved]
  - Weight decreased [Unknown]
  - Vision blurred [Unknown]
  - Pleural effusion [Unknown]
  - Rash [Recovering/Resolving]
  - Decreased appetite [Unknown]
  - Diarrhoea [Unknown]
